FAERS Safety Report 19266540 (Version 1)
Quarter: 2021Q2

REPORT INFORMATION
  Report Type: Spontaneous
  Country: VN (occurrence: VN)
  Receive Date: 20210517
  Receipt Date: 20210517
  Transmission Date: 20210717
  Serious: Yes (Other)
  Sender: FDA-Public Use
  Company Number: VN-ROCHE-2830785

PATIENT
  Age: 52 Year
  Sex: Male
  Weight: 58 kg

DRUGS (2)
  1. AMLODIPINE [Concomitant]
     Active Substance: AMLODIPINE BESYLATE
     Indication: HYPERTENSION
     Route: 065
  2. ACTILYSE [Suspect]
     Active Substance: ALTEPLASE
     Indication: CEREBRAL INFARCTION
     Dosage: 1 VIAL. 5ML WITH BOLUS AND 45MG/L WITH AUTOMATIC INFUSION PUMP.
     Route: 042
     Dates: start: 20210405, end: 20210405

REACTIONS (4)
  - Hemiparesis [Recovering/Resolving]
  - Haemorrhagic transformation stroke [Recovering/Resolving]
  - Hemiparesis [Recovering/Resolving]
  - Facial paralysis [Recovering/Resolving]

NARRATIVE: CASE EVENT DATE: 20210406
